FAERS Safety Report 17308461 (Version 4)
Quarter: 2021Q1

REPORT INFORMATION
  Report Type: Spontaneous
  Country: US (occurrence: US)
  Receive Date: 20200123
  Receipt Date: 20210120
  Transmission Date: 20210419
  Serious: Yes (Other)
  Sender: FDA-Public Use
  Company Number: US-SA-2020SA015246

PATIENT
  Age: 61 Year
  Sex: Male

DRUGS (3)
  1. PLAQUENIL [Concomitant]
     Active Substance: HYDROXYCHLOROQUINE SULFATE
  2. DUPIXENT [Suspect]
     Active Substance: DUPILUMAB
     Dosage: 300 MG, QOW
     Route: 058
     Dates: start: 20191127, end: 2020
  3. DUPIXENT [Suspect]
     Active Substance: DUPILUMAB
     Indication: DERMATITIS ATOPIC
     Dosage: 300 MG, QOW
     Route: 058
     Dates: start: 20191030, end: 2019

REACTIONS (4)
  - Pruritus [Recovering/Resolving]
  - Unevaluable event [Recovering/Resolving]
  - Therapeutic response decreased [Recovering/Resolving]
  - Leukaemia [Recovering/Resolving]

NARRATIVE: CASE EVENT DATE: 20191127
